FAERS Safety Report 8859922 (Version 3)
Quarter: 2012Q4

REPORT INFORMATION
  Report Type: 
  Country: JP (occurrence: JP)
  Receive Date: 20121025
  Receipt Date: 20121221
  Transmission Date: 20130627
  Serious: Yes (Hospitalization)
  Sender: FDA-Public Use
  Company Number: JP-ELI_LILLY_AND_COMPANY-JP201209006406

PATIENT
  Age: 79 Year
  Sex: Male

DRUGS (5)
  1. FORTEO [Suspect]
     Dosage: UNK
     Route: 058
     Dates: start: 20120728
  2. FORTEO [Suspect]
     Dosage: UNK
     Route: 058
     Dates: start: 2012, end: 2012
  3. PLAVIX [Concomitant]
     Dosage: UNK
  4. CRESTOR [Concomitant]
     Dosage: UNK
  5. MUCOSOLVAN [Concomitant]
     Dosage: UNK

REACTIONS (5)
  - Pancreatitis [Unknown]
  - Dizziness [Not Recovered/Not Resolved]
  - Malaise [Unknown]
  - Nausea [Not Recovered/Not Resolved]
  - Intentional drug misuse [Unknown]
